FAERS Safety Report 4811424-2 (Version None)
Quarter: 2005Q4

REPORT INFORMATION
  Report Type: 
  Country: None (occurrence: None)
  Receive Date: 20051027
  Receipt Date: 20051017
  Transmission Date: 20060501
  Serious: Yes (Hospitalization)
  Sender: FDA-Public Use
  Company Number: HK-SANOFI-SYNTHELABO-A01200507073

PATIENT
  Age: 74 Year
  Sex: Male

DRUGS (4)
  1. CLOPIDOGREL [Suspect]
     Indication: ANGINA UNSTABLE
     Route: 048
  2. CLOPIDOGREL [Suspect]
     Indication: CORONARY ANGIOPLASTY
     Route: 048
  3. CLOPIDOGREL [Suspect]
     Indication: THROMBOSIS PROPHYLAXIS
     Route: 048
  4. PANTOPRAZOLE [Concomitant]
     Indication: GASTRODUODENAL ULCER
     Dosage: 40 MG
     Route: 048

REACTIONS (8)
  - ALANINE AMINOTRANSFERASE INCREASED [None]
  - BLOOD ALKALINE PHOSPHATASE INCREASED [None]
  - BLOOD BILIRUBIN INCREASED [None]
  - CHROMATURIA [None]
  - HEPATOTOXICITY [None]
  - JAUNDICE [None]
  - NEUTROPENIA [None]
  - THROMBOCYTOPENIA [None]
